FAERS Safety Report 15681361 (Version 15)
Quarter: 2022Q3

REPORT INFORMATION
  Report Type: Report from Study
  Country: US (occurrence: US)
  Receive Date: 20181203
  Receipt Date: 20220804
  Transmission Date: 20221027
  Serious: Yes (Hospitalization, Other)
  Sender: FDA-Public Use
  Company Number: US-GLAXOSMITHKLINE-US2018GSK209696

PATIENT

DRUGS (4)
  1. BELIMUMAB [Suspect]
     Active Substance: BELIMUMAB
     Indication: Systemic lupus erythematosus
     Dosage: 650 MG, Z
     Route: 042
     Dates: start: 201205, end: 20160923
  2. BELIMUMAB [Suspect]
     Active Substance: BELIMUMAB
     Dosage: 2200 MG, Z (EVERY 14 DAYS)
     Route: 042
     Dates: start: 20170711, end: 20180221
  3. AZATHIOPRINE [Suspect]
     Active Substance: AZATHIOPRINE
     Indication: Systemic lupus erythematosus
     Dosage: 50 MG, BID
     Route: 048
     Dates: start: 20081217
  4. CELEXA [Concomitant]
     Active Substance: CITALOPRAM HYDROBROMIDE
     Indication: Product used for unknown indication
     Dosage: 20MG/DAY PRIOR TO DEC 2012

REACTIONS (2)
  - Appendicitis [Recovered/Resolved with Sequelae]
  - Renal cell carcinoma [Recovered/Resolved with Sequelae]

NARRATIVE: CASE EVENT DATE: 20160906
